FAERS Safety Report 10850265 (Version 1)
Quarter: 2015Q1

REPORT INFORMATION
  Report Type: Spontaneous
  Country: US (occurrence: US)
  Receive Date: 20150221
  Receipt Date: 20150221
  Transmission Date: 20150721
  Serious: No
  Sender: FDA-Public Use
  Company Number: US-NOVEN-14US013156

PATIENT
  Age: 53 Year
  Sex: Female

DRUGS (1)
  1. MINIVELLE [Suspect]
     Active Substance: ESTRADIOL
     Indication: HOT FLUSH
     Dosage: UNK
     Route: 062
     Dates: start: 201411

REACTIONS (3)
  - Back pain [Not Recovered/Not Resolved]
  - Breast tenderness [Recovering/Resolving]
  - Nipple pain [Recovering/Resolving]

NARRATIVE: CASE EVENT DATE: 20141208
